FAERS Safety Report 9363349 (Version 1)
Quarter: 2013Q2

REPORT INFORMATION
  Report Type: Spontaneous
  Country: US (occurrence: None)
  Receive Date: 20130621
  Receipt Date: 20130621
  Transmission Date: 20140414
  Serious: Yes (Other)
  Sender: FDA-Public Use
  Company Number: None

PATIENT
  Age: 7 Year
  Sex: Male
  Weight: 29 kg

DRUGS (2)
  1. VALPROATE SODIUM [Suspect]
     Indication: CONVULSION
     Dosage: EVERY 8 HOURS
     Route: 042
     Dates: start: 20130609, end: 20130613
  2. MEROPENEM [Suspect]
     Indication: INFECTION
     Dosage: EVERY 8 HOURS
     Route: 042
     Dates: start: 20130609, end: 20130613

REACTIONS (4)
  - Infection [None]
  - Drug interaction [None]
  - Anticonvulsant drug level below therapeutic [None]
  - Convulsion [None]
